FAERS Safety Report 20690951 (Version 1)
Quarter: 2022Q2

REPORT INFORMATION
  Report Type: Spontaneous
  Country: US (occurrence: None)
  Receive Date: 20220406
  Receipt Date: 20220406
  Transmission Date: 20220720
  Serious: Yes (Hospitalization)
  Sender: FDA-Public Use
  Company Number: None

PATIENT
  Sex: Male
  Weight: 72.12 kg

DRUGS (10)
  1. ABIRATERONE ACETATE [Suspect]
     Active Substance: ABIRATERONE ACETATE
     Indication: Prostate cancer
     Dosage: 500MG DAILY ORAL?
     Route: 048
     Dates: start: 20220306
  2. ELIQUIS [Concomitant]
  3. METOPROLOL TARTRATE [Concomitant]
  4. MELATONIN [Concomitant]
  5. AMLODIPINE BESYLATE [Concomitant]
  6. LUPRON DEPOT [Concomitant]
  7. FLOMAX [Concomitant]
  8. SIMVASTATIN [Concomitant]
  9. IRON [Concomitant]
     Active Substance: IRON
  10. CRANBERRY [Concomitant]

REACTIONS (1)
  - Diarrhoea [None]
